FAERS Safety Report 8519173-4 (Version None)
Quarter: 2012Q3

REPORT INFORMATION
  Report Type: 
  Country: None (occurrence: None)
  Receive Date: 20120718
  Receipt Date: 20120705
  Transmission Date: 20120928
  Serious: Yes (Hospitalization)
  Sender: FDA-Public Use
  Company Number: IT-009507513-1203USA01989

PATIENT

DRUGS (7)
  1. PANTOPRAZOLE [Concomitant]
     Dosage: 40 MG, QD
     Route: 048
     Dates: start: 20100930
  2. BARNIDIPINE [Concomitant]
     Dosage: 10 MG, QD
     Route: 048
     Dates: start: 20110530, end: 20120223
  3. ASPIRIN [Concomitant]
     Dosage: 100 MG, QD
     Route: 048
     Dates: start: 20090927
  4. FUROSEMIDE [Concomitant]
     Dosage: 25 MG, QD
     Route: 048
     Dates: start: 20090927
  5. VALSARTAN AND HYDROCHLOROTHIAZIDE [Concomitant]
     Dosage: 320/12.5
     Route: 048
     Dates: start: 20100526, end: 20120222
  6. EZETIMIBE/SIMVASTATIN [Suspect]
     Dosage: 10-40
     Route: 048
     Dates: start: 20090923, end: 20111204
  7. BISOPROLOL FUMARATE [Concomitant]
     Dosage: 2.5 MG, QD
     Route: 048
     Dates: start: 20090927

REACTIONS (1)
  - BILE DUCT STONE [None]
